FAERS Safety Report 8455342 (Version 3)
Quarter: 2016Q2

REPORT INFORMATION
  Report Type: Spontaneous
  Country: US (occurrence: US)
  Receive Date: 20120313
  Receipt Date: 20160513
  Transmission Date: 20160815
  Serious: Yes (Other)
  Sender: FDA-Public Use
  Company Number: US-PFIZER INC-2012060303

PATIENT
  Age: 67 Year
  Sex: Female

DRUGS (2)
  1. RAPAMUNE [Suspect]
     Active Substance: SIROLIMUS
     Dosage: 2 MG, 1X/DAY
     Dates: start: 20120913
  2. RAPAMUNE [Suspect]
     Active Substance: SIROLIMUS
     Indication: PROPHYLAXIS AGAINST TRANSPLANT REJECTION
     Dosage: 1 MG, 1X/DAY
     Dates: end: 20120913

REACTIONS (4)
  - Deafness unilateral [Unknown]
  - Product use issue [Unknown]
  - Liver transplant rejection [Unknown]
  - Rash [Unknown]

NARRATIVE: CASE EVENT DATE: 20120913
